FAERS Safety Report 8965452 (Version 1)
Quarter: 2012Q4

REPORT INFORMATION
  Report Type: 
  Country: JP (occurrence: JP)
  Receive Date: 20121213
  Receipt Date: 20121213
  Transmission Date: 20130627
  Serious: Yes (Other)
  Sender: FDA-Public Use
  Company Number: JP-ASTELLAS-2012JP011521

PATIENT
  Age: 15 Year
  Sex: Male

DRUGS (17)
  1. PROGRAF [Suspect]
     Indication: PROPHYLAXIS AGAINST GRAFT VERSUS HOST DISEASE
     Dosage: 0.025 mg/kg, Continuous
     Route: 041
  2. MELPHALAN [Concomitant]
     Indication: BONE MARROW CONDITIONING REGIMEN
     Dosage: 90 mg/m2, Unknown/D
     Route: 065
  3. G-CSF [Concomitant]
     Dosage: UNK
     Route: 065
  4. G-CSF [Concomitant]
     Dosage: UNK
     Route: 065
  5. FUNGUARD [Concomitant]
     Dosage: UNK
     Route: 065
  6. FUNGUARD [Concomitant]
     Dosage: 150 mg, Unknown/D
     Route: 065
  7. FUNGUARD [Concomitant]
     Dosage: UNK
     Route: 065
  8. CEFOZOPRAN [Concomitant]
     Dosage: UNK
     Route: 065
  9. PANIPENEM [Concomitant]
     Dosage: UNK
     Route: 065
  10. VANCOMYCIN [Concomitant]
     Dosage: UNK
     Route: 065
  11. CIPROFLOXACIN [Concomitant]
     Dosage: UNK
     Route: 065
  12. CIPROFLOXACIN [Concomitant]
     Dosage: UNK
     Route: 065
  13. AMPHOTERICIN B [Concomitant]
     Dosage: UNK
     Route: 065
  14. AMPHOTERICIN B [Concomitant]
     Dosage: 2.5 mg/kg, Unknown/D
     Route: 065
  15. AMPHOTERICIN B [Concomitant]
     Dosage: 5 mg/kg, Unknown/D
     Route: 065
  16. AMPHOTERICIN B [Concomitant]
     Dosage: UNK
     Route: 065
  17. AMPHOTERICIN B [Concomitant]
     Dosage: 15 mg/kg, Unknown/D
     Route: 065

REACTIONS (2)
  - Drug ineffective [Unknown]
  - Acute graft versus host disease [Unknown]
